FAERS Safety Report 4426406-2 (Version None)
Quarter: 2004Q3

REPORT INFORMATION
  Report Type: 
  Country: None (occurrence: None)
  Receive Date: 20040811
  Receipt Date: 20040802
  Transmission Date: 20050211
  Serious: Yes (Life-Threatening, Hospitalization)
  Sender: FDA-Public Use
  Company Number: 2000AP04313

PATIENT
  Age: 57 Year
  Sex: Male
  Weight: 65 kg

DRUGS (2)
  1. TENORMIN [Suspect]
     Dosage: 2800 MG ONCE PO
     Route: 048
     Dates: start: 20000921, end: 20000921
  2. VERAPAMIL [Suspect]
     Dosage: 1600 MG ONCE PO
     Route: 048
     Dates: start: 20000921, end: 20000921

REACTIONS (13)
  - ANURIA [None]
  - ATRIOVENTRICULAR BLOCK FIRST DEGREE [None]
  - CARDIOGENIC SHOCK [None]
  - COLD SWEAT [None]
  - DRUG INEFFECTIVE [None]
  - FEELING COLD [None]
  - GLASGOW COMA SCALE ABNORMAL [None]
  - HYPOVENTILATION [None]
  - MULTIPLE DRUG OVERDOSE [None]
  - PULMONARY OEDEMA [None]
  - PULSE ABSENT [None]
  - RESPIRATORY DISORDER [None]
  - SINUS BRADYCARDIA [None]
